FAERS Safety Report 4618594-X (Version None)
Quarter: 2005Q1

REPORT INFORMATION
  Report Type: 
  Country: None (occurrence: None)
  Receive Date: 20050324
  Receipt Date: 20050311
  Transmission Date: 20050727
  Serious: Yes (Hospitalization)
  Sender: FDA-Public Use
  Company Number: MK200503-0162-1

PATIENT
  Age: 55 Year
  Sex: Male

DRUGS (5)
  1. TOFRANIL TAB [Suspect]
     Indication: DEPRESSION
     Dates: start: 20000919, end: 20000920
  2. SAROTEN [Suspect]
     Dosage: 250 MG DAILY
     Dates: start: 20000919, end: 20000921
  3. MOVERIL [Suspect]
     Dosage: 240 MG DAILY
     Dates: start: 20000919, end: 20000920
  4. CARBAMAZEPINE [Suspect]
     Dosage: 750 MG
     Dates: start: 20000919
  5. TAVOR [Concomitant]

REACTIONS (3)
  - DELIRIUM [None]
  - RESTLESSNESS [None]
  - TREMOR [None]
